FAERS Safety Report 11103863 (Version 1)
Quarter: 2015Q2

REPORT INFORMATION
  Report Type: Spontaneous
  Country: CA (occurrence: CA)
  Receive Date: 20150511
  Receipt Date: 20150511
  Transmission Date: 20150821
  Serious: Yes (Hospitalization, Other)
  Sender: FDA-Public Use
  Company Number: CA-HOSPIRA-2851840

PATIENT
  Sex: Female

DRUGS (4)
  1. LORAZEPAM. [Suspect]
     Active Substance: LORAZEPAM
     Indication: PRODUCT USED FOR UNKNOWN INDICATION
     Route: 065
  2. LIORESAL [Suspect]
     Active Substance: BACLOFEN
     Indication: MUSCLE SPASMS
     Route: 037
  3. STEMETIL /00013301/ [Suspect]
     Active Substance: PROCHLORPERAZINE
     Indication: PRODUCT USED FOR UNKNOWN INDICATION
     Route: 065
  4. BACLOFEN. [Suspect]
     Active Substance: BACLOFEN
     Indication: PRODUCT USED FOR UNKNOWN INDICATION
     Route: 048

REACTIONS (17)
  - Generalised tonic-clonic seizure [Unknown]
  - No therapeutic response [Unknown]
  - Thyroid disorder [Unknown]
  - Vomiting [Unknown]
  - Pruritus [Unknown]
  - Drug withdrawal syndrome [Unknown]
  - Implant site haemorrhage [Unknown]
  - Muscle spasticity [Unknown]
  - Tachycardia [Unknown]
  - Dehydration [Unknown]
  - Confusional state [Unknown]
  - Drug hypersensitivity [Unknown]
  - Petit mal epilepsy [Unknown]
  - Muscular weakness [Unknown]
  - Aggression [Unknown]
  - Overdose [Unknown]
  - Somnolence [Unknown]
